FAERS Safety Report 11799657 (Version 1)
Quarter: 2015Q4

REPORT INFORMATION
  Report Type: Report from Study
  Country: US (occurrence: US)
  Receive Date: 20151203
  Receipt Date: 20151203
  Transmission Date: 20160305
  Serious: Yes (Other)
  Sender: FDA-Public Use
  Company Number: US-TEVA-612996USA

PATIENT
  Age: 70 Year
  Sex: Male

DRUGS (19)
  1. LNOTUZUMAB OZOGAMICIN [Suspect]
     Active Substance: INOTUZUMAB OZOGAMICIN
     Dosage: CYCLE 1 DAY 3
     Route: 042
  2. LASIX [Concomitant]
     Active Substance: FUROSEMIDE
     Dosage: 20 MILLIGRAM DAILY;
     Route: 048
  3. LANTUS [Concomitant]
     Active Substance: INSULIN GLARGINE
     Route: 058
  4. LEXAPRO [Concomitant]
     Active Substance: ESCITALOPRAM OXALATE
     Dosage: 10 MILLIGRAM DAILY;
     Route: 048
  5. FLOMAX [Concomitant]
     Active Substance: TAMSULOSIN HYDROCHLORIDE
  6. CYTARABINE. [Suspect]
     Active Substance: CYTARABINE
     Dosage: CYCLE 1 DAY 7 (CYCLE 2 DAY 21)
     Route: 037
  7. ASPIRIN. [Concomitant]
     Active Substance: ASPIRIN
     Dosage: 81 MILLIGRAM DAILY;
     Route: 048
  8. INSULIN REGULAR [Concomitant]
     Active Substance: INSULIN NOS
     Dosage: 300 IU (INTERNATIONAL UNIT) DAILY;
     Route: 058
  9. VINCRISTINE [Suspect]
     Active Substance: VINCRISTINE
     Dosage: DAYS 1
     Route: 042
     Dates: start: 20141205, end: 20150126
  10. METHYLPREDNISOLONE. [Suspect]
     Active Substance: METHYLPREDNISOLONE
     Dosage: 80 MILLIGRAM DAILY; DAYS 1-3
     Route: 042
     Dates: start: 20150106
  11. CYCLOPHOSPHAMID [Suspect]
     Active Substance: CYCLOPHOSPHAMIDE
     Dosage: 300 MG/M2 DAILY; DAYS 1-4
     Route: 042
  12. PROTONIX [Concomitant]
     Active Substance: PANTOPRAZOLE SODIUM
     Dosage: 40 MILLIGRAM DAILY;
     Route: 048
  13. POTASSIUM CHLORIDE. [Concomitant]
     Active Substance: POTASSIUM CHLORIDE
     Dosage: 40 MILLIEQUIVALENTS DAILY; 15 CC
  14. IPRATROPIUM BROMIDE W/SALBUTAMOL [Concomitant]
     Indication: DYSPNOEA
     Dosage: 3 CUBIC CENTIMETERS
     Route: 055
  15. RITUXIMAB [Suspect]
     Active Substance: RITUXIMAB
     Dosage: CYCLE 2 DAYS 2 AND 7
     Route: 042
  16. MESNA. [Suspect]
     Active Substance: MESNA
     Dosage: DAYS 1-3
     Route: 042
     Dates: start: 20141205, end: 20150126
  17. METHOTREXATE [Suspect]
     Active Substance: METHOTREXATE
     Dosage: CYCLE 1 DAY 1 AND CYCLE 2 DAY 2
     Route: 037
  18. SPIRONOLACTONE. [Concomitant]
     Active Substance: SPIRONOLACTONE
     Dosage: 25 MILLIGRAM DAILY;
     Route: 048
  19. RITUXIMAB [Suspect]
     Active Substance: RITUXIMAB
     Dosage: CYCLE 1 DAYS 2 AND 8
     Route: 042

REACTIONS (1)
  - Venoocclusive liver disease [Unknown]

NARRATIVE: CASE EVENT DATE: 20150318
